FAERS Safety Report 7367028-3 (Version None)
Quarter: 2011Q1

REPORT INFORMATION
  Report Type: 
  Country: None (occurrence: None)
  Receive Date: 20110322
  Receipt Date: 20110314
  Transmission Date: 20110831
  Serious: Yes (Death, Other)
  Sender: FDA-Public Use
  Company Number: US-AMGEN-KDC407983

PATIENT

DRUGS (4)
  1. BEVACIZUMAB [Suspect]
     Dosage: 10 MG/KG, Q2WK
     Route: 042
  2. CYCLOPHOSPHAMIDE [Suspect]
     Dosage: 600 MG/M2, Q2WK
     Route: 042
  3. DOXORUBICIN HCL [Suspect]
     Dosage: 60 MG/M2, Q2WK
  4. PEGFILGRASTIM [Suspect]
     Indication: CHEMOTHERAPY
     Dosage: 6 MG, UNK
     Route: 058

REACTIONS (8)
  - HEPATITIS B [None]
  - EJECTION FRACTION DECREASED [None]
  - NEOPLASM MALIGNANT [None]
  - MULTI-ORGAN FAILURE [None]
  - TOXICITY TO VARIOUS AGENTS [None]
  - DEATH [None]
  - PNEUMONIA VIRAL [None]
  - SEPSIS [None]
